FAERS Safety Report 26091129 (Version 3)
Quarter: 2025Q4

REPORT INFORMATION
  Report Type: Spontaneous
  Country: US (occurrence: US)
  Receive Date: 20251126
  Receipt Date: 20251224
  Transmission Date: 20260117
  Serious: No
  Sender: KARYOPHARM THERAPEUTICS
  Company Number: US-KARYOPHARM-2025KPT100993

PATIENT

DRUGS (12)
  1. SELINEXOR [Suspect]
     Active Substance: SELINEXOR
     Indication: Plasma cell myeloma
     Dosage: 20 MG WEEKLY
     Route: 048
     Dates: start: 20251114, end: 2025
  2. SELINEXOR [Suspect]
     Active Substance: SELINEXOR
     Dosage: 40 MG WEEKLY
     Route: 048
     Dates: start: 2025
  3. HYDRALAZINE [Concomitant]
     Active Substance: HYDRALAZINE HYDROCHLORIDE
  4. IRBESARTAN [Concomitant]
     Active Substance: IRBESARTAN
  5. POMALYST [Concomitant]
     Active Substance: POMALIDOMIDE
  6. DEXAMETHASONE [Concomitant]
     Active Substance: DEXAMETHASONE
  7. PANTOPRAZOLE [Concomitant]
     Active Substance: PANTOPRAZOLE
  8. TRAMADOL [Concomitant]
     Active Substance: TRAMADOL
  9. ASPIRIN [Concomitant]
     Active Substance: ASPIRIN
  10. ZOLEDRONIC ACID [Concomitant]
     Active Substance: ZOLEDRONIC ACID
  11. ACYCLOVIR [Concomitant]
     Active Substance: ACYCLOVIR
  12. ONDANSETRON [Concomitant]
     Active Substance: ONDANSETRON

REACTIONS (3)
  - Somnolence [Unknown]
  - Musculoskeletal chest pain [Unknown]
  - Arthralgia [Unknown]

NARRATIVE: CASE EVENT DATE: 20250101
